FAERS Safety Report 6165532-7 (Version None)
Quarter: 2009Q2

REPORT INFORMATION
  Report Type: 
  Country: None (occurrence: None)
  Receive Date: 20090423
  Receipt Date: 20080329
  Transmission Date: 20091009
  Serious: No
  Sender: FDA-Public Use
  Company Number: US-BRISTOL-MYERS SQUIBB COMPANY-14135883

PATIENT

DRUGS (1)
  1. PARAPLATIN [Suspect]

REACTIONS (1)
  - DRUG INEFFECTIVE [None]
